FAERS Safety Report 14763050 (Version 3)
Quarter: 2018Q2

REPORT INFORMATION
  Report Type: Spontaneous
  Country: KR (occurrence: KR)
  Receive Date: 20180416
  Receipt Date: 20180508
  Transmission Date: 20180711
  Serious: Yes (Life-Threatening, Other)
  Sender: FDA-Public Use
  Company Number: KR-PFIZER INC-2018152895

PATIENT
  Age: 49 Year
  Sex: Male

DRUGS (6)
  1. METHOTREXATE SODIUM. [Suspect]
     Active Substance: METHOTREXATE SODIUM
     Indication: CENTRAL NERVOUS SYSTEM LYMPHOMA
     Dosage: 1.5 G, SINGLE (HIGH DOSE)
     Route: 042
  2. FAMOTIDINE. [Concomitant]
     Active Substance: FAMOTIDINE
     Indication: PREMEDICATION
     Dosage: 20 MG, UNK (1 HOUR BEFORE)
  3. CYTARABINE W/METHOTREXATE [Concomitant]
     Active Substance: CYTARABINE\METHOTREXATE
     Indication: CENTRAL NERVOUS SYSTEM LYMPHOMA
     Dosage: UNK, CYCLIC, HIGH-DOSE CYTARABINE (HD-ARAC) (3 G/M2)
  4. METHOTREXATE SODIUM. [Suspect]
     Active Substance: METHOTREXATE SODIUM
     Dosage: 7.0 G, CYCLIC (RE-ADMINISTERED IN THE SECOND CYCLE, HIGH DOSE)
     Route: 042
  5. METHOTREXATE SODIUM. [Suspect]
     Active Substance: METHOTREXATE SODIUM
     Dosage: 1.5 G, CYCLIC (HIGH DOSE)
     Route: 042
  6. METHOTREXATE SODIUM. [Suspect]
     Active Substance: METHOTREXATE SODIUM
     Dosage: 3.5 G, CYCLIC (RE-ADMINISTERED IN THE SECOND CYCLE HIGH DOSE)
     Route: 042

REACTIONS (1)
  - Anaphylactic reaction [Recovering/Resolving]
